FAERS Safety Report 7412703-5 (Version None)
Quarter: 2011Q2

REPORT INFORMATION
  Report Type: 
  Country: None (occurrence: None)
  Receive Date: 20110413
  Receipt Date: 20110407
  Transmission Date: 20111010
  Serious: Yes (Hospitalization)
  Sender: FDA-Public Use
  Company Number: A0777241A

PATIENT
  Age: 52 Year
  Sex: Male
  Weight: 154.1 kg

DRUGS (9)
  1. INSULIN [Concomitant]
  2. PLAVIX [Concomitant]
  3. AVANDIA [Suspect]
     Indication: DIABETES MELLITUS
     Route: 048
     Dates: start: 20000101, end: 20020301
  4. CELEBREX [Concomitant]
  5. PRINIVIL [Concomitant]
  6. LIPITOR [Concomitant]
  7. TIAZAC [Concomitant]
  8. VASOTEC [Concomitant]
  9. ASPIRIN [Concomitant]

REACTIONS (6)
  - ATRIAL FIBRILLATION [None]
  - TRANSIENT ISCHAEMIC ATTACK [None]
  - CARDIOMYOPATHY [None]
  - MYOCARDIAL INFARCTION [None]
  - CEREBROVASCULAR ACCIDENT [None]
  - CARDIAC FAILURE CONGESTIVE [None]
